FAERS Safety Report 10208545 (Version 1)
Quarter: 2014Q2

REPORT INFORMATION
  Report Type: Other
  Country: IT (occurrence: IT)
  Receive Date: 20140530
  Receipt Date: 20140530
  Transmission Date: 20141212
  Serious: Yes (Death, Other)
  Sender: FDA-Public Use
  Company Number: IT-BRISTOL-MYERS SQUIBB COMPANY-20810909

PATIENT
  Age: 50 Year
  Sex: 0

DRUGS (3)
  1. ATAZANAVIR [Suspect]
     Indication: ANTIRETROVIRAL THERAPY
  2. SORAFENIB [Interacting]
     Indication: ANTIRETROVIRAL THERAPY
  3. EMTRICITABINE/TENOFOVIR DISOPROXIL FUMARATE [Interacting]
     Indication: ANTIRETROVIRAL THERAPY

REACTIONS (3)
  - Oesophageal varices haemorrhage [Fatal]
  - Hepatotoxicity [Unknown]
  - Drug interaction [Unknown]
